FAERS Safety Report 5360233-7 (Version None)
Quarter: 2007Q2

REPORT INFORMATION
  Report Type: 
  Country: None (occurrence: None)
  Receive Date: 20070618
  Receipt Date: 20070612
  Transmission Date: 20071010
  Serious: Yes (Death, Other)
  Sender: FDA-Public Use
  Company Number: CA-ELI_LILLY_AND_COMPANY-CA200704001201

PATIENT
  Age: 44 Year
  Sex: Male
  Weight: 122 kg

DRUGS (2)
  1. LIPITOR [Concomitant]
     Dosage: 10 MG, EACH EVENING
  2. ZYPREXA ZYDIS [Suspect]
     Indication: PSYCHOTIC DISORDER
     Dosage: 5 MG, DAILY (1/D)
     Route: 048
     Dates: start: 20030301

REACTIONS (2)
  - DIABETES MELLITUS [None]
  - OBESITY [None]
